FAERS Safety Report 23637986 (Version 1)
Quarter: 2024Q1

REPORT INFORMATION
  Report Type: Spontaneous
  Country: US (occurrence: US)
  Receive Date: 20240315
  Receipt Date: 20240315
  Transmission Date: 20240410
  Serious: Yes (Other)
  Sender: FDA-Public Use
  Company Number: US-TEVA-VS-3169654

PATIENT
  Age: 75 Year
  Sex: Female

DRUGS (1)
  1. PENICILLIN [Suspect]
     Active Substance: PENICILLIN
     Indication: Product used for unknown indication
     Route: 065

REACTIONS (3)
  - Anaphylactic reaction [Unknown]
  - Urticaria [Unknown]
  - Swelling [Unknown]
